FAERS Safety Report 8376832-4 (Version None)
Quarter: 2012Q2

REPORT INFORMATION
  Report Type: 
  Country: None (occurrence: None)
  Receive Date: 20120522
  Receipt Date: 20120515
  Transmission Date: 20120825
  Serious: Yes (Other)
  Sender: FDA-Public Use
  Company Number: TW-B.I. PHARMACEUTICALS,INC./RIDGEFIELD-2012-RU-00176BP

PATIENT
  Sex: Male

DRUGS (3)
  1. TIOTROPIUM BROMIDE [Suspect]
     Dosage: 5 MCG
     Route: 055
     Dates: start: 20120307
  2. ACETYLCYSTEINE [Concomitant]
     Indication: CHRONIC OBSTRUCTIVE PULMONARY DISEASE
     Dosage: 600 MG
     Route: 048
     Dates: start: 20120416, end: 20120422
  3. TIOTROPIUM BROMIDE [Suspect]
     Indication: CHRONIC OBSTRUCTIVE PULMONARY DISEASE
     Dosage: 5 MCG
     Route: 055
     Dates: start: 20120307

REACTIONS (1)
  - CHEST DISCOMFORT [None]
